FAERS Safety Report 15730778 (Version 2)
Quarter: 2019Q1

REPORT INFORMATION
  Report Type: Spontaneous
  Country: US (occurrence: US)
  Receive Date: 20181217
  Receipt Date: 20190228
  Transmission Date: 20190417
  Serious: Yes (Other)
  Sender: FDA-Public Use
  Company Number: US-SA-2018SA340105

PATIENT
  Age: 65 Year
  Sex: Female
  Weight: 89 kg

DRUGS (9)
  1. TAXOTERE [Suspect]
     Active Substance: DOCETAXEL
     Dosage: 144 MG, UNK
     Route: 042
     Dates: start: 20160427, end: 20160427
  2. TAXOTERE [Suspect]
     Active Substance: DOCETAXEL
     Dosage: 143 MG, Q3W
     Route: 042
     Dates: start: 20160518, end: 20160518
  3. MELOXICAM. [Concomitant]
     Active Substance: MELOXICAM
  4. TAXOTERE [Suspect]
     Active Substance: DOCETAXEL
     Dosage: 144 MG, UNK
     Route: 042
     Dates: start: 20160406, end: 20160406
  5. LISINOPRIL. [Concomitant]
     Active Substance: LISINOPRIL
     Dosage: UNK
     Dates: start: 2008, end: 201809
  6. ACIPHEX [Concomitant]
     Active Substance: RABEPRAZOLE SODIUM
     Dosage: UNK
     Dates: start: 2008, end: 201808
  7. TRAMADOL. [Concomitant]
     Active Substance: TRAMADOL
     Dosage: UNK UNK, UNK
  8. TAXOTERE [Suspect]
     Active Substance: DOCETAXEL
     Indication: BREAST CANCER
     Dosage: UNK UNK, Q3W
     Route: 042
     Dates: start: 201602, end: 201602
  9. TAXOTERE [Suspect]
     Active Substance: DOCETAXEL
     Dosage: 144 MG, UNK
     Route: 042
     Dates: start: 20160316, end: 20160316

REACTIONS (2)
  - Alopecia [Recovering/Resolving]
  - Psychological trauma [Unknown]

NARRATIVE: CASE EVENT DATE: 201602
